FAERS Safety Report 24852572 (Version 1)
Quarter: 2025Q1

REPORT INFORMATION
  Report Type: Spontaneous
  Country: US (occurrence: US)
  Receive Date: 20250116
  Receipt Date: 20250116
  Transmission Date: 20250408
  Serious: No
  Sender: SK LIFE SCIENCE
  Company Number: US-SK LIFE SCIENCE, INC-SKPVG-2024-002478

PATIENT

DRUGS (9)
  1. XCOPRI [Suspect]
     Active Substance: CENOBAMATE
     Indication: Epilepsy
     Route: 065
     Dates: start: 20240407
  2. XCOPRI [Suspect]
     Active Substance: CENOBAMATE
     Indication: Seizure
     Route: 065
  3. XCOPRI [Suspect]
     Active Substance: CENOBAMATE
     Route: 065
  4. XCOPRI [Suspect]
     Active Substance: CENOBAMATE
     Route: 065
     Dates: start: 20240806
  5. XCOPRI [Suspect]
     Active Substance: CENOBAMATE
     Dosage: 400 MILLIGRAM, QD (NIGHTLY)
     Route: 065
     Dates: start: 20241018
  6. XCOPRI [Suspect]
     Active Substance: CENOBAMATE
     Route: 065
  7. LAMOTRIGINE [Concomitant]
     Active Substance: LAMOTRIGINE
     Indication: Product used for unknown indication
     Route: 065
     Dates: start: 1993
  8. ROSUVASTATIN [Concomitant]
     Active Substance: ROSUVASTATIN
     Indication: Product used for unknown indication
     Route: 065
     Dates: start: 2022
  9. FAMOTIDINE [Concomitant]
     Active Substance: FAMOTIDINE
     Indication: Product used for unknown indication
     Route: 065
     Dates: start: 2021

REACTIONS (6)
  - Drug ineffective [Not Recovered/Not Resolved]
  - Seizure [Not Recovered/Not Resolved]
  - Insomnia [Unknown]
  - Anxiety [Unknown]
  - Fatigue [Not Recovered/Not Resolved]
  - Dizziness [Recovered/Resolved]

NARRATIVE: CASE EVENT DATE: 20240401
